FAERS Safety Report 12223191 (Version 2)
Quarter: 2016Q2

REPORT INFORMATION
  Report Type: Report from Study
  Country: US (occurrence: US)
  Receive Date: 20160330
  Receipt Date: 20160520
  Transmission Date: 20160815
  Serious: Yes (Hospitalization)
  Sender: FDA-Public Use
  Company Number: US-BAYER-2015-441002

PATIENT
  Age: 63 Year
  Sex: Female

DRUGS (4)
  1. STIVARGA [Suspect]
     Active Substance: REGORAFENIB
     Indication: COLON CANCER
     Dosage: 160 MG, QD (4 X 40 MG), 21 DAYS ON/7 DAYS OFF
     Route: 048
  2. STIVARGA [Suspect]
     Active Substance: REGORAFENIB
     Indication: LUNG NEOPLASM MALIGNANT
     Dosage: 160 MG, QD (4 X 40 MG)
     Route: 048
     Dates: start: 20151102
  3. STIVARGA [Suspect]
     Active Substance: REGORAFENIB
     Indication: COLON CANCER
     Dosage: 160 MG, QD (4 X 40 MG)
     Route: 048
     Dates: start: 20151001, end: 2015
  4. STIVARGA [Suspect]
     Active Substance: REGORAFENIB
     Indication: COLON CANCER
     Dosage: 120MG DAILY
     Route: 048
     Dates: start: 20151001

REACTIONS (13)
  - Blood potassium decreased [Unknown]
  - Pain in extremity [Recovered/Resolved]
  - Blood pressure increased [None]
  - Blood iron decreased [Unknown]
  - Myocardial infarction [None]
  - Pain in extremity [None]
  - Headache [None]
  - Nausea [None]
  - Peripheral swelling [None]
  - Infection [Unknown]
  - Dehydration [Unknown]
  - Abdominal pain upper [None]
  - Blood count abnormal [Unknown]

NARRATIVE: CASE EVENT DATE: 20151004
